FAERS Safety Report 4739674-4 (Version None)
Quarter: 2005Q3

REPORT INFORMATION
  Report Type: 
  Country: None (occurrence: None)
  Receive Date: 20050810
  Receipt Date: 20050425
  Transmission Date: 20060218
  Serious: Yes (Other)
  Sender: FDA-Public Use
  Company Number: US-GLAXOSMITHKLINE-A0555568A

PATIENT
  Age: 31 Year
  Sex: Male

DRUGS (3)
  1. PAROXETINE HCL [Suspect]
     Dosage: 20MG PER DAY
     Route: 048
     Dates: start: 20041101
  2. PAXIL [Suspect]
     Dosage: 20MG PER DAY
     Route: 048
     Dates: start: 20000101, end: 20041101
  3. LAMISIL [Concomitant]

REACTIONS (1)
  - HEPATIC ENZYME INCREASED [None]
